FAERS Safety Report 7311471-5 (Version None)
Quarter: 2011Q1

REPORT INFORMATION
  Report Type: 
  Country: None (occurrence: None)
  Receive Date: 20110224
  Receipt Date: 20110209
  Transmission Date: 20110831
  Serious: Yes (Other)
  Sender: FDA-Public Use
  Company Number: PHFR2011GB01224

PATIENT
  Sex: Female

DRUGS (3)
  1. ARIPIPRAZOLE [Concomitant]
  2. METFORMIN [Concomitant]
     Indication: WEIGHT INCREASED
  3. CLOZARIL [Suspect]
     Indication: PERSONALITY DISORDER
     Dosage: UNK
     Route: 048
     Dates: start: 20110128

REACTIONS (2)
  - SCAR [None]
  - INTENTIONAL SELF-INJURY [None]
